FAERS Safety Report 25727767 (Version 1)
Quarter: 2025Q3

REPORT INFORMATION
  Report Type: Spontaneous
  Country: US (occurrence: None)
  Receive Date: 20250825
  Receipt Date: 20250825
  Transmission Date: 20251020
  Serious: Yes (Hospitalization)
  Sender: FDA-CTU
  Company Number: None

PATIENT

DRUGS (2)
  1. POTASSIUM ACETATE [Suspect]
     Active Substance: POTASSIUM ACETATE
  2. LISINOPRIL [Suspect]
     Active Substance: LISINOPRIL

REACTIONS (5)
  - Asthenia [None]
  - Abdominal pain [None]
  - Oedema peripheral [None]
  - Blood pressure increased [None]
  - Blood potassium increased [None]

NARRATIVE: CASE EVENT DATE: 20220226
